FAERS Safety Report 9342994 (Version 2)
Quarter: 2013Q2

REPORT INFORMATION
  Report Type: Report from Study
  Country: JP (occurrence: JP)
  Receive Date: 20130611
  Receipt Date: 20130621
  Transmission Date: 20140414
  Serious: Yes (Death, Hospitalization)
  Sender: FDA-Public Use
  Company Number: JP-ABBOTT-13P-087-1102877-00

PATIENT
  Age: 47 Year
  Sex: Female

DRUGS (1)
  1. LEUPLIN SR FOR INJECTION KIT 11.25 MG [Suspect]
     Indication: BREAST CANCER
     Route: 058
     Dates: start: 20120622, end: 20120928

REACTIONS (1)
  - Breast cancer female [Fatal]
